FAERS Safety Report 5713888-9 (Version None)
Quarter: 2008Q2

REPORT INFORMATION
  Report Type: 
  Country: None (occurrence: None)
  Receive Date: 20080422
  Receipt Date: 20080422
  Transmission Date: 20081010
  Serious: Yes (Hospitalization)
  Sender: FDA-Public Use
  Company Number: None

PATIENT
  Age: 10 Month
  Sex: Female
  Weight: 8.6183 kg

DRUGS (2)
  1. RISPERDAL [Suspect]
  2. RESPERDAL DM 1MG-12MG-5MG/ML DROP CYPRESS [Suspect]
     Indication: COUGH

REACTIONS (1)
  - MEDICATION ERROR [None]
